FAERS Safety Report 4665777-9 (Version None)
Quarter: 2005Q2

REPORT INFORMATION
  Report Type: 
  Country: None (occurrence: None)
  Receive Date: 20050519
  Receipt Date: 20050509
  Transmission Date: 20051028
  Serious: Yes (Hospitalization)
  Sender: FDA-Public Use
  Company Number: 200511585FR

PATIENT
  Age: 78 Year
  Sex: Male

DRUGS (7)
  1. LASILIX 40 MG [Suspect]
     Route: 048
     Dates: end: 20041222
  2. ALDACTONE [Suspect]
     Route: 048
     Dates: end: 20041222
  3. COVERSYL [Suspect]
     Route: 048
     Dates: end: 20041222
  4. AMLOR [Concomitant]
     Route: 048
  5. TAHOR [Concomitant]
     Route: 048
  6. AMIODARONE MERCK [Concomitant]
     Route: 048
  7. SOMATULINE LP 30 MG [Concomitant]
     Indication: ACROMEGALY
     Route: 030

REACTIONS (7)
  - ATRIAL FIBRILLATION [None]
  - DEHYDRATION [None]
  - HEART RATE IRREGULAR [None]
  - HYPERKALAEMIA [None]
  - LUNG CREPITATION [None]
  - PITTING OEDEMA [None]
  - RENAL IMPAIRMENT [None]
